FAERS Safety Report 24140790 (Version 1)
Quarter: 2024Q3

REPORT INFORMATION
  Report Type: Spontaneous
  Country: US (occurrence: US)
  Receive Date: 20240726
  Receipt Date: 20240726
  Transmission Date: 20241017
  Serious: Yes (Life-Threatening, Hospitalization, Other)
  Sender: MACLEODS
  Company Number: US-MACLEODS PHARMA-MAC-AE-097

PATIENT

DRUGS (8)
  1. LEVOFLOXACIN [Suspect]
     Active Substance: LEVOFLOXACIN
     Indication: Sinusitis
     Route: 065
  2. LEVOFLOXACIN [Suspect]
     Active Substance: LEVOFLOXACIN
     Indication: Vertigo
  3. MECLIZINE [Concomitant]
     Active Substance: MECLIZINE HYDROCHLORIDE
     Indication: Sinusitis
     Dosage: 12.5MG AS NEEDED
     Route: 065
  4. MECLIZINE [Concomitant]
     Active Substance: MECLIZINE HYDROCHLORIDE
     Indication: Vertigo
  5. AMI-TEX [Concomitant]
     Indication: Sinusitis
     Dosage: 1 2 TABLETS TWICE DAILY
     Route: 065
  6. AMI-TEX [Concomitant]
     Indication: Vertigo
  7. CIPROFLOXACIN [Concomitant]
     Active Substance: CIPROFLOXACIN
     Indication: Sinusitis
     Route: 065
  8. CIPROFLOXACIN [Concomitant]
     Active Substance: CIPROFLOXACIN

REACTIONS (10)
  - Delirium [Recovered/Resolved]
  - Psychotic disorder [Recovered/Resolved]
  - Delusion [Recovered/Resolved]
  - Decreased appetite [Recovered/Resolved]
  - Retrograde amnesia [Recovered/Resolved]
  - Restlessness [Recovered/Resolved]
  - Hallucinations, mixed [Recovered/Resolved]
  - Paranoia [Recovered/Resolved]
  - Insomnia [Recovered/Resolved]
  - Agitation [Recovered/Resolved]
